FAERS Safety Report 18035116 (Version 16)
Quarter: 2025Q2

REPORT INFORMATION
  Report Type: Report from Study
  Country: US (occurrence: US)
  Receive Date: 20200717
  Receipt Date: 20250624
  Transmission Date: 20250717
  Serious: Yes (Hospitalization, Other)
  Sender: TAKEDA
  Company Number: US-SHIRE-US202022833

PATIENT
  Sex: Female
  Weight: 66 kg

DRUGS (56)
  1. HUMAN IMMUNOGLOBULIN G [Suspect]
     Active Substance: HUMAN IMMUNOGLOBULIN G
     Indication: Immunodeficiency common variable
     Dosage: 18 GRAM, 1/WEEK
  2. DIPHENHYDRAMINE [Concomitant]
     Active Substance: DIPHENHYDRAMINE
  3. ALBUTEROL SULFATE [Concomitant]
     Active Substance: ALBUTEROL SULFATE
  4. EPINEPHRINE [Concomitant]
     Active Substance: EPINEPHRINE
  5. BREO ELLIPTA [Concomitant]
     Active Substance: FLUTICASONE FUROATE\VILANTEROL TRIFENATATE
  6. RANITIDINE HYDROCHLORIDE [Concomitant]
     Active Substance: RANITIDINE HYDROCHLORIDE
  7. ROPINIROLE HYDROCHLORIDE [Concomitant]
     Active Substance: ROPINIROLE HYDROCHLORIDE
  8. SPIRIVA [Concomitant]
     Active Substance: TIOTROPIUM BROMIDE MONOHYDRATE
  9. NYSTATIN [Concomitant]
     Active Substance: NYSTATIN
  10. SYNTHROID [Concomitant]
     Active Substance: LEVOTHYROXINE SODIUM
  11. LEVAQUIN [Concomitant]
     Active Substance: LEVOFLOXACIN
  12. MEDROL [Concomitant]
     Active Substance: METHYLPREDNISOLONE
  13. Folivane plus [Concomitant]
  14. TRAMADOL HCL [Concomitant]
     Active Substance: TRAMADOL HYDROCHLORIDE
  15. ACETAMINOPHEN [Concomitant]
     Active Substance: ACETAMINOPHEN
  16. GABAPENTIN [Concomitant]
     Active Substance: GABAPENTIN
  17. XOLAIR [Concomitant]
     Active Substance: OMALIZUMAB
  18. LINZESS [Concomitant]
     Active Substance: LINACLOTIDE
  19. Norga [Concomitant]
  20. BUSPIRONE HCL [Concomitant]
     Active Substance: BUSPIRONE HYDROCHLORIDE
  21. DOXYCYCLINE HYCLATE [Concomitant]
     Active Substance: DOXYCYCLINE HYCLATE
  22. LIDOCAINE [Concomitant]
     Active Substance: LIDOCAINE
  23. LIDOCAINE [Concomitant]
     Active Substance: LIDOCAINE
  24. FLONASE [Concomitant]
     Active Substance: FLUTICASONE PROPIONATE
  25. OGESTREL-28 [Concomitant]
  26. DIPHENHYDRAMINE HYDROCHLORIDE [Concomitant]
     Active Substance: DIPHENHYDRAMINE HYDROCHLORIDE
  27. FLUTICASONE PROPIONATE [Concomitant]
     Active Substance: FLUTICASONE PROPIONATE
  28. AZITHROMYCIN [Concomitant]
     Active Substance: AZITHROMYCIN
     Dosage: 250 MILLIGRAM, QD
  29. DOXYCYCLINE [Concomitant]
     Active Substance: DOXYCYCLINE
     Dosage: 100 MILLIGRAM, BID
  30. BACTROBAN [Concomitant]
     Active Substance: MUPIROCIN CALCIUM
  31. MACROBID [Concomitant]
     Active Substance: NITROFURANTOIN\NITROFURANTOIN MONOHYDRATE
  32. VALTREX [Concomitant]
     Active Substance: VALACYCLOVIR HYDROCHLORIDE
     Dosage: 1 GRAM, TID
  33. TEZSPIRE [Concomitant]
     Active Substance: TEZEPELUMAB-EKKO
  34. ARIMIDEX [Concomitant]
     Active Substance: ANASTROZOLE
     Dosage: 1 MILLIGRAM, QD
  35. BUSPAR [Concomitant]
     Active Substance: BUSPIRONE HYDROCHLORIDE
     Dosage: 30 MILLIGRAM, BID
  36. VITAMIN B12 [Concomitant]
     Active Substance: CYANOCOBALAMIN
     Dosage: 1 MILLIGRAM, Q2WEEKS
  37. PROLIA [Concomitant]
     Active Substance: DENOSUMAB
  38. PROAIR HFA [Concomitant]
     Active Substance: ALBUTEROL SULFATE
  39. DUONEB [Concomitant]
     Active Substance: ALBUTEROL SULFATE\IPRATROPIUM BROMIDE
  40. ATIVAN [Concomitant]
     Active Substance: LORAZEPAM
     Dosage: 1 MILLIGRAM, QID
  41. URIBEL [Concomitant]
     Active Substance: HYOSCYAMINE SULFATE\METHENAMINE\METHYLENE BLUE\PHENYL SALICYLATE\SODIUM PHOSPHATE, MONOBASIC, MONOHY
  42. METHYLPREDNISOLONE [Concomitant]
     Active Substance: METHYLPREDNISOLONE
     Dosage: 16 MILLIGRAM, QD
  43. AMERGE [Concomitant]
     Active Substance: NARATRIPTAN HYDROCHLORIDE
     Dosage: 2.5 MILLIGRAM, QD
  44. PEPCID [Concomitant]
     Active Substance: FAMOTIDINE
     Dosage: UNK UNK, QD
  45. FOLIC ACID [Concomitant]
     Active Substance: FOLIC ACID
     Dosage: 1 MILLIGRAM, QD
  46. NEURONTIN [Concomitant]
     Active Substance: GABAPENTIN
     Dosage: 800 MILLIGRAM, TID
  47. EUTHYROX [Concomitant]
     Active Substance: LEVOTHYROXINE SODIUM
     Dosage: 212 MICROGRAM, BID
  48. SINGULAIR [Concomitant]
     Active Substance: MONTELUKAST SODIUM
     Dosage: 10 MILLIGRAM, QD
  49. PROTONIX [Concomitant]
     Active Substance: PANTOPRAZOLE SODIUM
     Dosage: 40 MILLIGRAM, QD
  50. REQUIP [Concomitant]
     Active Substance: ROPINIROLE HYDROCHLORIDE
     Dosage: 1 MILLIGRAM, TID
  51. ULTRAM [Concomitant]
     Active Substance: TRAMADOL HYDROCHLORIDE
     Dosage: 50 MILLIGRAM, QD
  52. OLEPTRO [Concomitant]
     Active Substance: TRAZODONE HYDROCHLORIDE
  53. BIOTIN [Concomitant]
     Active Substance: BIOTIN
     Dosage: 1 MILLIGRAM, QD
  54. VITAMIN D3 [Concomitant]
     Active Substance: CHOLECALCIFEROL
  55. CLARITIN [Concomitant]
     Active Substance: LORATADINE
     Dosage: 10 MILLIGRAM, BID
  56. VITAMINS [Concomitant]
     Active Substance: VITAMINS

REACTIONS (44)
  - Gastric haemorrhage [Unknown]
  - Pneumonia [Unknown]
  - Neuropathy peripheral [Unknown]
  - Paget^s disease of nipple [Unknown]
  - Intraductal proliferative breast lesion [Unknown]
  - Immune thrombocytopenia [Unknown]
  - Urinary tract infection [Unknown]
  - Pharyngitis streptococcal [Unknown]
  - COVID-19 [Unknown]
  - Bronchitis [Unknown]
  - Infusion site discharge [Unknown]
  - Platelet count decreased [Unknown]
  - Meniscus injury [Unknown]
  - Carpal tunnel syndrome [Unknown]
  - Hypersomnia [Unknown]
  - Intervertebral disc protrusion [Unknown]
  - Fungal skin infection [Unknown]
  - Dyspnoea exertional [Unknown]
  - Intervertebral disc degeneration [Unknown]
  - Bacterial infection [Unknown]
  - Constipation [Unknown]
  - Gastrooesophageal reflux disease [Unknown]
  - Oral herpes [Unknown]
  - Cystitis interstitial [Unknown]
  - Spondylitis [Unknown]
  - Arthritis [Unknown]
  - Incontinence [Unknown]
  - Sinusitis [Unknown]
  - Upper respiratory tract infection [Unknown]
  - Asthma [Unknown]
  - Herpes simplex [Unknown]
  - Infusion site haemorrhage [Unknown]
  - Infusion site mass [Recovered/Resolved]
  - Influenza [Unknown]
  - Palpitations [Unknown]
  - Night sweats [Unknown]
  - Injection site swelling [Unknown]
  - Chest pain [Unknown]
  - Cough [Unknown]
  - Injection site pain [Unknown]
  - Migraine [Recovered/Resolved]
  - Headache [Unknown]
  - Fatigue [Unknown]
  - Nausea [Unknown]

NARRATIVE: CASE EVENT DATE: 20170101
